FAERS Safety Report 6496004-8 (Version None)
Quarter: 2009Q4

REPORT INFORMATION
  Report Type: 
  Country: None (occurrence: None)
  Receive Date: 20091214
  Receipt Date: 20090915
  Transmission Date: 20100525
  Serious: No
  Sender: FDA-Public Use
  Company Number: US-BRISTOL-MYERS SQUIBB COMPANY-14779342

PATIENT
  Age: 14 Year
  Sex: Female
  Weight: 54 kg

DRUGS (4)
  1. ABILIFY [Suspect]
     Indication: AGGRESSION
     Dosage: 1 DF = 5 MG TO 22 MG
  2. ABILIFY [Suspect]
     Indication: MOOD SWINGS
     Dosage: 1 DF = 5 MG TO 22 MG
  3. ABILIFY [Suspect]
     Indication: ATTENTION DEFICIT/HYPERACTIVITY DISORDER
     Dosage: 1 DF = 5 MG TO 22 MG
  4. LAMICTAL [Concomitant]

REACTIONS (4)
  - AGGRESSION [None]
  - AGITATION [None]
  - IRRITABILITY [None]
  - TREMOR [None]
